FAERS Safety Report 5588699-8 (Version None)
Quarter: 2008Q1

REPORT INFORMATION
  Report Type: 
  Country: None (occurrence: None)
  Receive Date: 20080111
  Receipt Date: 20080103
  Transmission Date: 20080703
  Serious: Yes (Life-Threatening)
  Sender: FDA-Public Use
  Company Number: B0359466A

PATIENT
  Age: 15 Year
  Sex: Male

DRUGS (2)
  1. SEROXAT [Suspect]
     Indication: DEPRESSION
     Dosage: 20MG PER DAY
     Route: 065
     Dates: start: 20020807, end: 20021101
  2. VENLAFAXINE HCL [Concomitant]
     Dates: start: 20021101

REACTIONS (11)
  - AGGRESSION [None]
  - ANXIETY [None]
  - DRUG WITHDRAWAL SYNDROME [None]
  - HEADACHE [None]
  - INSOMNIA [None]
  - INTENTIONAL SELF-INJURY [None]
  - PERSONALITY CHANGE [None]
  - PSYCHIATRIC SYMPTOM [None]
  - SELF ESTEEM DECREASED [None]
  - SUICIDAL IDEATION [None]
  - TREMOR [None]
